FAERS Safety Report 13554650 (Version 1)
Quarter: 2017Q2

REPORT INFORMATION
  Report Type: Spontaneous
  Country: TW (occurrence: TW)
  Receive Date: 20170517
  Receipt Date: 20170517
  Transmission Date: 20170830
  Serious: Yes (Other)
  Sender: FDA-Public Use
  Company Number: TW-BAYER-2017-090371

PATIENT
  Age: 80 Year
  Sex: Female

DRUGS (1)
  1. MIRENA [Suspect]
     Active Substance: LEVONORGESTREL
     Indication: CONTRACEPTION
     Dosage: 20 MCG/24HR, CONT
     Route: 015

REACTIONS (5)
  - Device use issue [Recovered/Resolved]
  - Wound infection [Recovered/Resolved]
  - Inflammation [Recovered/Resolved]
  - Embedded device [Recovered/Resolved]
  - Postmenopausal haemorrhage [Recovered/Resolved]
